FAERS Safety Report 6960297-0 (Version None)
Quarter: 2010Q3

REPORT INFORMATION
  Report Type: 
  Country: None (occurrence: None)
  Receive Date: 20100827
  Receipt Date: 20100818
  Transmission Date: 20110219
  Serious: Yes (Other)
  Sender: FDA-Public Use
  Company Number: 008920

PATIENT
  Age: 82 Year
  Sex: Male

DRUGS (6)
  1. KEPPRA [Suspect]
     Dosage: 500 MG BID ORAL
     Route: 048
  2. DEPAKENE [Concomitant]
  3. FUROSEMIDE [Concomitant]
  4. ATENOLOL [Concomitant]
  5. PLAVIX [Concomitant]
  6. TAMSULOSIN HCL [Concomitant]

REACTIONS (1)
  - PANCYTOPENIA [None]
